FAERS Safety Report 7156268-4 (Version None)
Quarter: 2010Q4

REPORT INFORMATION
  Report Type: 
  Country: None (occurrence: None)
  Receive Date: 20101214
  Receipt Date: 20101103
  Transmission Date: 20110411
  Serious: No
  Sender: FDA-Public Use
  Company Number: US-JNJFOC-20100901719

PATIENT
  Sex: Female
  Weight: 88.45 kg

DRUGS (6)
  1. INVEGA SUSTENNA [Suspect]
     Indication: SCHIZOAFFECTIVE DISORDER
     Route: 030
  2. ABILIFY [Concomitant]
     Indication: SCHIZOAFFECTIVE DISORDER
     Dosage: 20 MG EVERY AM, 30 MG EVERY HS
  3. RISPERIDONE [Concomitant]
     Indication: SCHIZOAFFECTIVE DISORDER
     Dosage: 4 MG EVERY AM, 2 MG EVERY HS
     Route: 048
  4. LITHIUM [Concomitant]
     Indication: SCHIZOAFFECTIVE DISORDER
  5. NORA-BE [Concomitant]
     Indication: CONTRACEPTION
     Route: 048
  6. OLIVE LEAVES EXTRACT [Concomitant]
     Indication: PHYTOTHERAPY

REACTIONS (3)
  - DRUG INEFFECTIVE [None]
  - PRURITUS [None]
  - SOMNOLENCE [None]
